FAERS Safety Report 4341874-2 (Version None)
Quarter: 2004Q2

REPORT INFORMATION
  Report Type: 
  Country: None (occurrence: None)
  Receive Date: 20040415
  Receipt Date: 20040328
  Transmission Date: 20050107
  Serious: Yes (Hospitalization)
  Sender: FDA-Public Use
  Company Number: USA040363624

PATIENT
  Age: 86 Year
  Sex: Female

DRUGS (3)
  1. HUMULIN 70/30 [Suspect]
     Indication: DIABETES MELLITUS
     Dosage: 40 U/2 DAY
     Dates: start: 19720101
  2. PLAVIX [Suspect]
  3. AGGRENOX [Concomitant]

REACTIONS (2)
  - DYSKINESIA [None]
  - HYPOAESTHESIA [None]
